FAERS Safety Report 9778811 (Version 2)
Quarter: 2014Q1

REPORT INFORMATION
  Report Type: Report from Study
  Country: FR (occurrence: FR)
  Receive Date: 20131223
  Receipt Date: 20140115
  Transmission Date: 20141002
  Serious: Yes (Death)
  Sender: FDA-Public Use
  Company Number: FR-SA-2013SA133363

PATIENT
  Age: 73 Year
  Sex: Male
  Weight: 60 kg

DRUGS (8)
  1. DOCETAXEL [Suspect]
     Indication: NON-SMALL CELL LUNG CANCER STAGE IV
     Route: 042
     Dates: start: 20121115
  2. BLINDED THERAPY [Suspect]
     Indication: NON-SMALL CELL LUNG CANCER STAGE IV
     Route: 042
     Dates: start: 20121115, end: 20121115
  3. BLINDED THERAPY [Suspect]
     Indication: NON-SMALL CELL LUNG CANCER STAGE IV
     Route: 042
     Dates: start: 20131205, end: 20131205
  4. BIPRETERAX [Concomitant]
     Dates: start: 2006, end: 20131217
  5. HYPERIUM [Concomitant]
     Indication: HYPERTENSION
     Dates: start: 2006, end: 20131217
  6. GALACTOSE/LACTOSE/LACTULOSE [Concomitant]
     Indication: CONSTIPATION
     Dates: start: 20120619, end: 20131217
  7. OXYCONTIN [Concomitant]
     Indication: PAIN
     Dates: start: 20120516, end: 20131217
  8. MOTILIUM [Concomitant]
     Indication: PROPHYLAXIS
     Dates: start: 20120615, end: 20131217

REACTIONS (1)
  - Death [Fatal]
